FAERS Safety Report 16430992 (Version 1)
Quarter: 2019Q2

REPORT INFORMATION
  Report Type: Spontaneous
  Country: US (occurrence: US)
  Receive Date: 20190507
  Receipt Date: 20190507
  Transmission Date: 20190711
  Serious: No
  Sender: FDA-Public Use
  Company Number: None

PATIENT
  Age: 92 Year
  Sex: Female
  Weight: 61.23 kg

DRUGS (1)
  1. ODOMZO [Suspect]
     Active Substance: SONIDEGIB
     Indication: BASAL CELL CARCINOMA
     Dosage: TAKE 1 CAPSULE BY MOUTH DAILY AS DIRECTED ON AN EMPTY STOMACH AT LEAST 1 HR BEFORE OR
     Route: 048
     Dates: start: 201904

REACTIONS (3)
  - Confusional state [None]
  - Delirium [None]
  - Restlessness [None]
